FAERS Safety Report 25282480 (Version 1)
Quarter: 2025Q2

REPORT INFORMATION
  Report Type: Spontaneous
  Country: FR (occurrence: FR)
  Receive Date: 20250508
  Receipt Date: 20250508
  Transmission Date: 20250716
  Serious: Yes (Hospitalization)
  Sender: MYLAN
  Company Number: None

PATIENT
  Age: 24 Year
  Sex: Female

DRUGS (4)
  1. TRAMADOL [Suspect]
     Active Substance: TRAMADOL
     Indication: Product used for unknown indication
     Dosage: CURRENTLY 100 MG 4 TIMES PER DAY
     Dates: start: 2010
  2. TRAMADOL [Suspect]
     Active Substance: TRAMADOL
     Dosage: CURRENTLY 100 MG 4 TIMES PER DAY
     Route: 048
     Dates: start: 2010
  3. TRAMADOL [Suspect]
     Active Substance: TRAMADOL
     Dosage: CURRENTLY 100 MG 4 TIMES PER DAY
     Route: 048
     Dates: start: 2010
  4. TRAMADOL [Suspect]
     Active Substance: TRAMADOL
     Dosage: CURRENTLY 100 MG 4 TIMES PER DAY
     Dates: start: 2010

REACTIONS (4)
  - Aggression [Recovered/Resolved]
  - Drug abuse [Recovering/Resolving]
  - Irritability [Recovered/Resolved]
  - Withdrawal syndrome [Recovered/Resolved]

NARRATIVE: CASE EVENT DATE: 20100101
